FAERS Safety Report 7883731-0 (Version None)
Quarter: 2011Q4

REPORT INFORMATION
  Report Type: 
  Country: None (occurrence: None)
  Receive Date: 20111102
  Receipt Date: 20111028
  Transmission Date: 20120403
  Serious: Yes (Other)
  Sender: FDA-Public Use
  Company Number: US-SANOFI-AVENTIS-2011SA063150

PATIENT
  Age: 49 Year
  Sex: Male
  Weight: 80 kg

DRUGS (2)
  1. LANTUS [Suspect]
     Dosage: DOSE:26 UNIT(S)
     Route: 058
  2. SOLOSTAR [Suspect]

REACTIONS (1)
  - EYE OPERATION [None]
